FAERS Safety Report 14602234 (Version 1)
Quarter: 2018Q1

REPORT INFORMATION
  Report Type: Report from Study
  Country: None (occurrence: CA)
  Receive Date: 20180306
  Receipt Date: 20180306
  Transmission Date: 20180509
  Serious: Yes (Other)
  Sender: FDA-Public Use
  Company Number: CA-ABBVIE-18K-028-2273508-00

PATIENT
  Sex: Female

DRUGS (1)
  1. HUMIRA [Suspect]
     Active Substance: ADALIMUMAB
     Indication: COLITIS ULCERATIVE
     Route: 058
     Dates: start: 20170601

REACTIONS (5)
  - Haemoglobin decreased [Unknown]
  - Drug ineffective [Unknown]
  - Intra-uterine contraceptive device insertion [Unknown]
  - Gastrointestinal inflammation [Unknown]
  - Serum ferritin abnormal [Unknown]

NARRATIVE: CASE EVENT DATE: 2017
